FAERS Safety Report 6115624-3 (Version None)
Quarter: 2009Q1

REPORT INFORMATION
  Report Type: 
  Country: None (occurrence: None)
  Receive Date: 20090313
  Receipt Date: 20090306
  Transmission Date: 20090719
  Serious: Yes (Death)
  Sender: FDA-Public Use
  Company Number: IN-GENENTECH-278854

PATIENT
  Age: 76 Year
  Sex: Female
  Weight: 60 kg

DRUGS (2)
  1. METALYSE [Suspect]
     Indication: MYOCARDIAL INFARCTION
     Dosage: 30 MG, UNK
     Route: 042
     Dates: start: 20090302, end: 20090302
  2. LOW MOLECULAR WT HEPARIN [Concomitant]
     Indication: DRUG USE FOR UNKNOWN INDICATION
     Dosage: UNK

REACTIONS (1)
  - DEATH [None]
